FAERS Safety Report 21399663 (Version 1)
Quarter: 2022Q4

REPORT INFORMATION
  Report Type: Spontaneous
  Country: DE (occurrence: DE)
  Receive Date: 20221001
  Receipt Date: 20221001
  Transmission Date: 20230112
  Serious: Yes (Hospitalization)
  Sender: FDA-Public Use
  Company Number: DE-ADRED-07679-01

PATIENT
  Age: 77 Year
  Sex: Male

DRUGS (5)
  1. METOPROLOL [Suspect]
     Active Substance: METOPROLOL
     Indication: Product used for unknown indication
     Dosage: 1 DOSAGE FORMS DAILY; 95 MG, 0.5-0-0.5-0
     Route: 065
  2. ATORVASTATIN [Concomitant]
     Active Substance: ATORVASTATIN
     Indication: Product used for unknown indication
     Dosage: 20 MILLIGRAM DAILY; 20 MG, 0-0-1-0
  3. Cefaomega [Concomitant]
     Indication: Product used for unknown indication
     Dosage: 4 DOSAGE FORMS DAILY; 2-0-2-0
  4. CHOLECALCIFEROL [Concomitant]
     Active Substance: CHOLECALCIFEROL
     Indication: Product used for unknown indication
     Dosage: 20000 IU, ACCORDING TO THE SCHEME
  5. VitaminK2 [Concomitant]
     Indication: Product used for unknown indication
     Dosage: 800 MICROGRAM DAILY; 200 UG, 2-0-2-0

REACTIONS (4)
  - Tachycardia [Unknown]
  - Feeling hot [Unknown]
  - Dizziness [Unknown]
  - Syncope [Unknown]
